FAERS Safety Report 4749129-9 (Version None)
Quarter: 2005Q3

REPORT INFORMATION
  Report Type: 
  Country: None (occurrence: None)
  Receive Date: 20050817
  Receipt Date: 20050804
  Transmission Date: 20060218
  Serious: Yes (Death)
  Sender: FDA-Public Use
  Company Number: 216676

PATIENT
  Age: 53 Year
  Sex: Male

DRUGS (4)
  1. RITUXAN [Suspect]
     Indication: NON-HODGKIN'S LYMPHOMA
     Dosage: 375 MG/M2, INTRAVENOUS
     Route: 042
     Dates: start: 20050716
  2. LEVOTHYROXINE SODIUM [Concomitant]
  3. OLOPATADINE HYDROCHLORIDE [Concomitant]
  4. DICLOFENAC SODIUM [Concomitant]

REACTIONS (6)
  - ANAPHYLACTIC REACTION [None]
  - CARDIAC ARREST [None]
  - DEPRESSED LEVEL OF CONSCIOUSNESS [None]
  - INFUSION RELATED REACTION [None]
  - PROCEDURAL COMPLICATION [None]
  - RESPIRATORY ARREST [None]
